FAERS Safety Report 25239286 (Version 1)
Quarter: 2025Q2

REPORT INFORMATION
  Report Type: Spontaneous
  Country: US (occurrence: US)
  Receive Date: 20250425
  Receipt Date: 20250425
  Transmission Date: 20250716
  Serious: No
  Sender: GLAND PHARMA LTD
  Company Number: US-GLANDPHARMA-US-2025GLNSPO01055

PATIENT

DRUGS (3)
  1. PLERIXAFOR [Suspect]
     Active Substance: PLERIXAFOR
     Indication: Blood stem cell harvest
     Route: 065
  2. CLARITIN [Concomitant]
     Active Substance: LORATADINE
     Indication: Bone pain
     Route: 065
  3. NIVESTYM [FILGRASTIM] [Concomitant]
     Route: 065

REACTIONS (5)
  - Feeling abnormal [Recovered/Resolved with Sequelae]
  - Feeling hot [Recovered/Resolved with Sequelae]
  - Urticaria [Recovered/Resolved with Sequelae]
  - Pruritus [Recovered/Resolved with Sequelae]
  - Erythema [Recovered/Resolved with Sequelae]
